APPROVED DRUG PRODUCT: CEFTRIAXONE
Active Ingredient: CEFTRIAXONE SODIUM
Strength: EQ 500MG BASE/VIAL
Dosage Form/Route: INJECTABLE;INTRAMUSCULAR, INTRAVENOUS
Application: A065294 | Product #002
Applicant: CEPHAZONE PHARMA LLC
Approved: Mar 26, 2007 | RLD: No | RS: No | Type: DISCN